FAERS Safety Report 7407469-9 (Version None)
Quarter: 2011Q2

REPORT INFORMATION
  Report Type: 
  Country: None (occurrence: None)
  Receive Date: 20110411
  Receipt Date: 20110401
  Transmission Date: 20111010
  Serious: Yes (Hospitalization, Other)
  Sender: FDA-Public Use
  Company Number: FR-BRISTOL-MYERS SQUIBB COMPANY-15591753

PATIENT
  Age: 71 Year
  Sex: Male
  Weight: 75 kg

DRUGS (1)
  1. ERBITUX [Suspect]
     Indication: HEAD AND NECK CANCER
     Dosage: APR-10 -AUG-2010,RECEIVED CETUXIMAB,FLUOROURACIL, PLATINE SALT. MONOTHERAPY OCT-10 LAST INF 15FEB11
     Route: 042
     Dates: start: 20100426, end: 20110215

REACTIONS (4)
  - CYTOLYTIC HEPATITIS [None]
  - HYPERTHERMIA [None]
  - CONJUNCTIVITIS [None]
  - CHILLS [None]
